FAERS Safety Report 10362795 (Version 2)
Quarter: 2014Q3

REPORT INFORMATION
  Report Type: Spontaneous
  Country: VE (occurrence: VE)
  Receive Date: 20140805
  Receipt Date: 20140805
  Transmission Date: 20150326
  Serious: Yes (Other)
  Sender: FDA-Public Use
  Company Number: PHHY2014VE088224

PATIENT
  Sex: Male

DRUGS (5)
  1. TEGRETOL [Suspect]
     Active Substance: CARBAMAZEPINE
     Indication: CONVULSION
     Dosage: 2000 MG, DAILY
     Route: 048
     Dates: end: 201405
  2. TEGRETOL [Suspect]
     Active Substance: CARBAMAZEPINE
     Dosage: 2000 MG, DAILY
     Route: 048
     Dates: start: 201406
  3. LYRICA [Concomitant]
     Active Substance: PREGABALIN
     Dosage: UNK UKN, UNK
     Dates: end: 201401
  4. VALPRON [Concomitant]
     Dosage: UNK UKN, UNK
  5. PREGABALIN. [Concomitant]
     Active Substance: PREGABALIN
     Dosage: 300 MG, DAILY
     Route: 048

REACTIONS (5)
  - Platelet count decreased [Recovered/Resolved]
  - Dizziness [Recovered/Resolved]
  - Glaucoma [Not Recovered/Not Resolved]
  - Contusion [Recovered/Resolved]
  - Visual acuity reduced [Not Recovered/Not Resolved]

NARRATIVE: CASE EVENT DATE: 2013
